FAERS Safety Report 11876597 (Version 2)
Quarter: 2016Q1

REPORT INFORMATION
  Report Type: Spontaneous
  Country: US (occurrence: US)
  Receive Date: 20151229
  Receipt Date: 20160113
  Transmission Date: 20160526
  Serious: Yes (Hospitalization)
  Sender: FDA-Public Use
  Company Number: US-BAYER-2015-494639

PATIENT
  Age: 28 Year
  Sex: Female
  Weight: 98.41 kg

DRUGS (4)
  1. MIRENA [Suspect]
     Active Substance: LEVONORGESTREL
     Indication: CONTRACEPTION
     Dosage: 20 MCG/24HR, CONT
     Route: 015
     Dates: start: 20081021, end: 20110630
  2. MOTRIN [Concomitant]
     Active Substance: IBUPROFEN
  3. CALCIUM CARBONATE. [Concomitant]
     Active Substance: CALCIUM CARBONATE
  4. ROCALTROL [Concomitant]
     Active Substance: CALCITRIOL

REACTIONS (6)
  - Frustration tolerance decreased [None]
  - Anxiety [None]
  - Depression [None]
  - Uterine perforation [None]
  - Device dislocation [None]
  - Device issue [None]

NARRATIVE: CASE EVENT DATE: 20081021
